FAERS Safety Report 7792215-X (Version None)
Quarter: 2011Q4

REPORT INFORMATION
  Report Type: 
  Country: None (occurrence: None)
  Receive Date: 20111003
  Receipt Date: 20111003
  Transmission Date: 20120403
  Serious: No
  Sender: FDA-Public Use
  Company Number: None

PATIENT
  Age: 68 Year
  Sex: Female

DRUGS (1)
  1. CHLORAPREP [Suspect]
     Indication: ANTI-INFECTIVE THERAPY

REACTIONS (2)
  - APPLICATION SITE REACTION [None]
  - SCRATCH [None]
